FAERS Safety Report 4400045-1 (Version None)
Quarter: 2004Q3

REPORT INFORMATION
  Report Type: 
  Country: None (occurrence: None)
  Receive Date: 20040716
  Receipt Date: 20040519
  Transmission Date: 20050211
  Serious: Yes (Hospitalization)
  Sender: FDA-Public Use
  Company Number: FR-MERCK-0405FRA00075

PATIENT
  Age: 82 Year
  Sex: Female

DRUGS (7)
  1. ACETAMINOPHEN AND PROPOXYPHENE HYDROCHLORIDE [Concomitant]
     Route: 048
  2. ACETYLLEUCINE [Concomitant]
     Route: 048
  3. INSULIN [Concomitant]
     Route: 065
  4. LOSARTAN POTASSIUM [Concomitant]
     Indication: HYPERTENSION
     Route: 048
  5. NICARDIPINE HYDROCHLORIDE [Concomitant]
     Indication: HYPERTENSION
     Route: 048
  6. ZOCOR [Suspect]
     Indication: HYPERCHOLESTEROLAEMIA
     Route: 048
     Dates: start: 19990101, end: 20040326
  7. TIANEPTINE SODIUM [Concomitant]
     Indication: DEPRESSION
     Route: 048

REACTIONS (2)
  - RHABDOMYOLYSIS [None]
  - SCIATICA [None]
